FAERS Safety Report 5720841-8 (Version None)
Quarter: 2008Q2

REPORT INFORMATION
  Report Type: 
  Country: None (occurrence: None)
  Receive Date: 20080429
  Receipt Date: 20080422
  Transmission Date: 20081010
  Serious: No
  Sender: FDA-Public Use
  Company Number: PHHY2008VE05510

PATIENT
  Age: 83 Year
  Sex: Male

DRUGS (1)
  1. ZOLEDRONIC ACID [Suspect]
     Dosage: 5 MG

REACTIONS (4)
  - CONFUSIONAL STATE [None]
  - EUPHORIC MOOD [None]
  - INCOHERENT [None]
  - INFLUENZA LIKE ILLNESS [None]
